FAERS Safety Report 11133210 (Version 8)
Quarter: 2021Q2

REPORT INFORMATION
  Report Type: Spontaneous
  Country: US (occurrence: US)
  Receive Date: 20150522
  Receipt Date: 20210409
  Transmission Date: 20210716
  Serious: Yes (Other)
  Sender: FDA-Public Use
  Company Number: US-PFIZER INC-2015113622

PATIENT
  Age: 66 Year
  Sex: Male
  Weight: 135 kg

DRUGS (2)
  1. LYRICA [Suspect]
     Active Substance: PREGABALIN
     Indication: NEUROPATHY PERIPHERAL
  2. LYRICA [Suspect]
     Active Substance: PREGABALIN
     Indication: NEURALGIA
     Dosage: 100 MG, 3X/DAY
     Route: 048
     Dates: start: 2013, end: 20180821

REACTIONS (6)
  - Arthropathy [Unknown]
  - Speech disorder [Unknown]
  - Gait inability [Unknown]
  - Palpitations [Unknown]
  - Intentional product use issue [Unknown]
  - Feeling abnormal [Unknown]
